FAERS Safety Report 13289997 (Version 1)
Quarter: 2017Q1

REPORT INFORMATION
  Report Type: Spontaneous
  Country: US (occurrence: US)
  Receive Date: 20170302
  Receipt Date: 20170302
  Transmission Date: 20170428
  Serious: Yes (Other)
  Sender: FDA-Public Use
  Company Number: US-PFIZER INC-2017085829

PATIENT
  Age: 2 Year
  Sex: Male

DRUGS (2)
  1. CARBOPLATIN. [Suspect]
     Active Substance: CARBOPLATIN
     Indication: WHITE MATTER LESION
     Dosage: UNK, CYCLIC
  2. VINCRISTINE SULFATE. [Suspect]
     Active Substance: VINCRISTINE SULFATE
     Dosage: UNK, CYCLIC

REACTIONS (2)
  - Thrombocytopenia [Unknown]
  - Hyponatraemia [Unknown]
